FAERS Safety Report 7340254-5 (Version None)
Quarter: 2011Q1

REPORT INFORMATION
  Report Type: 
  Country: None (occurrence: None)
  Receive Date: 20110309
  Receipt Date: 20100927
  Transmission Date: 20110831
  Serious: No
  Sender: FDA-Public Use
  Company Number: US-BAYER-201038044NA

PATIENT
  Age: 29 Year
  Sex: Female

DRUGS (2)
  1. MIRENA [Suspect]
     Indication: CONTRACEPTION
     Dosage: 20 ?G/D, CONT
     Route: 015
     Dates: start: 20100921, end: 20100921
  2. MIRENA [Suspect]
     Dosage: 20 ?G/D, CONT
     Route: 015
     Dates: start: 20100921, end: 20100921

REACTIONS (2)
  - PRODUCT SHAPE ISSUE [None]
  - COMPLICATION OF DEVICE INSERTION [None]
